FAERS Safety Report 8782205 (Version 3)
Quarter: 2012Q4

REPORT INFORMATION
  Report Type: 
  Country: US (occurrence: US)
  Receive Date: 20120913
  Receipt Date: 20121106
  Transmission Date: 20130627
  Serious: No
  Sender: FDA-Public Use
  Company Number: US-VERTEX PHARMACEUTICAL INC.-2012-020022

PATIENT
  Age: 60 None
  Sex: Male
  Weight: 113 kg

DRUGS (13)
  1. TELAPREVIR [Suspect]
     Indication: HEPATITIS C
     Dosage: 750 mg, tid
     Route: 048
     Dates: start: 20120801
  2. RIBAPAK [Concomitant]
     Indication: HEPATITIS C
     Dosage: 600 mg, bid
     Route: 048
     Dates: start: 20120801
  3. RIBAPAK [Concomitant]
     Dosage: 600 mg, qd
     Route: 048
  4. PEGASYS [Concomitant]
     Indication: HEPATITIS C
     Dosage: 180 ?g, UNK
     Route: 058
     Dates: start: 20120801
  5. MIRALAX                            /00754501/ [Concomitant]
     Route: 048
  6. FERROUS SULPHATE                   /00023503/ [Concomitant]
     Dosage: UNK, qd
  7. AMBIEN [Concomitant]
     Dosage: UNK, qd
  8. DILTIAZEM [Concomitant]
  9. MELOXICAM [Concomitant]
  10. OXYCODONE [Concomitant]
  11. OXYCONTIN [Concomitant]
  12. SERTRALINE [Concomitant]
  13. TAMSULOSIN [Concomitant]

REACTIONS (7)
  - Incorrect dose administered [Recovered/Resolved]
  - Sciatica [Unknown]
  - Depression [None]
  - Back pain [Unknown]
  - Constipation [Unknown]
  - Fatigue [Unknown]
  - Anaemia [Unknown]
